FAERS Safety Report 5010204-5 (Version None)
Quarter: 2006Q2

REPORT INFORMATION
  Report Type: 
  Country: None (occurrence: None)
  Receive Date: 20060404
  Receipt Date: 20060130
  Transmission Date: 20061013
  Serious: Yes (Death)
  Sender: FDA-Public Use
  Company Number: USA0510109900

PATIENT
  Age: 22 Year
  Sex: Female
  Weight: 59.9 kg

DRUGS (5)
  1. CYMBALTA [Suspect]
     Indication: DEPRESSION
     Dosage: 60 MG, DAILY (1/D), ORAL
     Route: 048
     Dates: start: 20050802
  2. MOBIC [Concomitant]
  3. ESZOPICLONE (ESZOPICLONE) [Concomitant]
  4. XANAX [Concomitant]
  5. PREVACID [Concomitant]

REACTIONS (1)
  - COMPLETED SUICIDE [None]
